FAERS Safety Report 6335727-8 (Version None)
Quarter: 2009Q3

REPORT INFORMATION
  Report Type: 
  Country: None (occurrence: None)
  Receive Date: 20090828
  Receipt Date: 20090814
  Transmission Date: 20100115
  Serious: Yes (Hospitalization)
  Sender: FDA-Public Use
  Company Number: 09-001292

PATIENT
  Age: 37 Year
  Sex: Female
  Weight: 104.3 kg

DRUGS (7)
  1. FEMCON FE [Suspect]
     Indication: MENORRHAGIA
     Dosage: 0.435/35MCG, QD, ORAL
     Route: 048
     Dates: start: 20090701, end: 20090805
  2. FEMCON FE [Suspect]
     Indication: MENSTRUATION IRREGULAR
     Dosage: 0.435/35MCG, QD, ORAL
     Route: 048
     Dates: start: 20090701, end: 20090805
  3. FEMCON FE [Suspect]
     Indication: THROMBOSIS
     Dosage: 0.435/35MCG, QD, ORAL
     Route: 048
     Dates: start: 20090701, end: 20090805
  4. DOXYCYCLINE HYCLATE [Suspect]
     Dosage: INTRAVENOUS
     Route: 042
  5. NEURONTIN [Concomitant]
  6. PROPRANOLOL [Concomitant]
  7. GLUCOSAMINE CHONDROITIN [Concomitant]

REACTIONS (5)
  - BURNING SENSATION [None]
  - CELLULITIS [None]
  - DRUG HYPERSENSITIVITY [None]
  - HYPERSENSITIVITY [None]
  - PHLEBITIS SUPERFICIAL [None]
